FAERS Safety Report 14547693 (Version 2)
Quarter: 2018Q1

REPORT INFORMATION
  Report Type: Spontaneous
  Country: FR (occurrence: FR)
  Receive Date: 20180219
  Receipt Date: 20180220
  Transmission Date: 20180509
  Serious: Yes (Hospitalization, Other)
  Sender: FDA-Public Use
  Company Number: FR-ABBVIE-18S-056-2255080-00

PATIENT
  Age: 54 Year
  Sex: Female

DRUGS (2)
  1. DASABUVIR [Suspect]
     Active Substance: DASABUVIR
     Indication: HEPATITIS C
     Route: 048
  2. OMBITASVIR/PARITAPREVIR/RITONAVIR [Suspect]
     Active Substance: OMBITASVIR\PARITAPREVIR\RITONAVIR
     Indication: HEPATITIS C
     Dosage: 12.5/75/50 MG
     Route: 048

REACTIONS (24)
  - Pneumothorax [Unknown]
  - Pyrexia [Unknown]
  - Poor venous access [Unknown]
  - Bacterial infection [Unknown]
  - Thoracotomy [Unknown]
  - Rectal haemorrhage [Unknown]
  - Weight decreased [Unknown]
  - Staphylococcal infection [Recovering/Resolving]
  - Back pain [Unknown]
  - Asthenia [Unknown]
  - Intervertebral discitis [Unknown]
  - Lung abscess [Unknown]
  - Inflammation [Unknown]
  - Nausea [Unknown]
  - Anaemia [Unknown]
  - Thrombophlebitis [Unknown]
  - Vomiting [Unknown]
  - Pulmonary sepsis [Unknown]
  - Inappropriate antidiuretic hormone secretion [Unknown]
  - Psoas abscess [Unknown]
  - Lung lobectomy [Unknown]
  - Pleurodesis [Unknown]
  - Hyponatraemia [Unknown]
  - Abdominal pain [Unknown]

NARRATIVE: CASE EVENT DATE: 201711
